FAERS Safety Report 6505436-0 (Version None)
Quarter: 2009Q4

REPORT INFORMATION
  Report Type: 
  Country: None (occurrence: None)
  Receive Date: 20091217
  Receipt Date: 20091217
  Transmission Date: 20100525
  Serious: Yes (Hospitalization)
  Sender: FDA-Public Use
  Company Number: None

PATIENT
  Age: 27 Year
  Sex: Male
  Weight: 97.3 kg

DRUGS (6)
  1. POMALIDOMIDE (CC-4047) [Suspect]
     Indication: CHRONIC GRAFT VERSUS HOST DISEASE
     Dosage: 2MG ONCE DAILY ORAL 2/16/09 TO 2/23/09 AT 3MG 3/2/09 TO 3/16/09 AT 2MG
     Route: 048
     Dates: start: 20090216, end: 20090223
  2. POMALIDOMIDE (CC-4047) [Suspect]
     Indication: CHRONIC GRAFT VERSUS HOST DISEASE
     Dosage: 2MG ONCE DAILY ORAL 2/16/09 TO 2/23/09 AT 3MG 3/2/09 TO 3/16/09 AT 2MG
     Route: 048
     Dates: start: 20090302, end: 20090316
  3. PREDNISONE [Concomitant]
  4. INDAPAMIDE [Concomitant]
  5. FK-506 [Concomitant]
  6. ASPIRIN [Concomitant]

REACTIONS (5)
  - COUGH [None]
  - DYSPNOEA [None]
  - OXYGEN SATURATION DECREASED [None]
  - PLEURAL EFFUSION [None]
  - PYREXIA [None]
